FAERS Safety Report 18166932 (Version 10)
Quarter: 2021Q3

REPORT INFORMATION
  Report Type: Report from Study
  Country: US (occurrence: US)
  Receive Date: 20200819
  Receipt Date: 20210920
  Transmission Date: 20211014
  Serious: Yes (Hospitalization, Other)
  Sender: FDA-Public Use
  Company Number: US-BIOVITRUM-2020US4378

PATIENT
  Sex: Female

DRUGS (2)
  1. METOPROLOL TARTRATE. [Concomitant]
     Active Substance: METOPROLOL TARTRATE
  2. KINERET [Suspect]
     Active Substance: ANAKINRA
     Indication: PRODUCT USED FOR UNKNOWN INDICATION
     Route: 058
     Dates: start: 20201130

REACTIONS (11)
  - Wound infection [Unknown]
  - Product dose omission issue [Unknown]
  - Poor quality device used [Unknown]
  - Accident [Unknown]
  - Skin infection [Unknown]
  - Bradycardia [Unknown]
  - Tachycardia [Unknown]
  - Product quality issue [Unknown]
  - Pneumonia [Unknown]
  - Rib fracture [Unknown]
  - Loss of personal independence in daily activities [Not Recovered/Not Resolved]
